FAERS Safety Report 25798643 (Version 1)
Quarter: 2025Q3

REPORT INFORMATION
  Report Type: Spontaneous
  Country: US (occurrence: US)
  Receive Date: 20250913
  Receipt Date: 20250913
  Transmission Date: 20251021
  Serious: No
  Sender: ALEXION PHARMACEUTICALS
  Company Number: US-AstraZeneca-CH-00948928A

PATIENT
  Sex: Female

DRUGS (1)
  1. NEXIUM [Suspect]
     Active Substance: ESOMEPRAZOLE MAGNESIUM
     Route: 065

REACTIONS (8)
  - Product use issue [Unknown]
  - Throat irritation [Unknown]
  - Abdominal discomfort [Unknown]
  - Eating disorder [Unknown]
  - Dyspepsia [Unknown]
  - Dry mouth [Unknown]
  - Muscle spasms [Unknown]
  - Gait disturbance [Unknown]
